FAERS Safety Report 8432723-1 (Version None)
Quarter: 2012Q2

REPORT INFORMATION
  Report Type: 
  Country: None (occurrence: None)
  Receive Date: 20120613
  Receipt Date: 20120605
  Transmission Date: 20120825
  Serious: Yes (Other)
  Sender: FDA-Public Use
  Company Number: ES-ABBOTT-12P-144-0942267-00

PATIENT
  Age: 50 Year
  Sex: Male

DRUGS (3)
  1. VIDEX [Suspect]
     Indication: HIV INFECTION
     Route: 048
     Dates: start: 20031028, end: 20110323
  2. KALETRA [Suspect]
     Indication: HIV INFECTION
     Dosage: 400/200 MG DAY
     Route: 048
     Dates: start: 20031028
  3. ZERIT [Suspect]
     Indication: HIV INFECTION
     Route: 048
     Dates: start: 20031028, end: 20110323

REACTIONS (1)
  - LIPODYSTROPHY ACQUIRED [None]
